FAERS Safety Report 23617271 (Version 1)
Quarter: 2024Q1

REPORT INFORMATION
  Report Type: Spontaneous
  Country: US (occurrence: None)
  Receive Date: 20240309
  Receipt Date: 20240309
  Transmission Date: 20240409
  Serious: Yes (Hospitalization, Other)
  Sender: FDA-Public Use
  Company Number: None

PATIENT
  Age: 57 Year
  Sex: Female
  Weight: 63 kg

DRUGS (5)
  1. TYLENOL PM EXTRA STRENGTH, CVP HEALTH [Suspect]
     Active Substance: ACETAMINOPHEN\DIPHENHYDRAMINE HYDROCHLORIDE
     Indication: Ocular discomfort
     Dosage: OTHER QUANTITY : 24 CAPLETS;?FREQUENCY : AT BEDTIME;?
     Route: 048
     Dates: start: 20240217, end: 20240303
  2. TYLENOL PM EXTRA STRENGTH, CVP HEALTH [Suspect]
     Active Substance: ACETAMINOPHEN\DIPHENHYDRAMINE HYDROCHLORIDE
     Indication: Arthralgia
  3. ALBUTEROL [Concomitant]
     Active Substance: ALBUTEROL
  4. EUCERIN ECZEMA RELIEF BODY WASH AND CREAM [Concomitant]
  5. CVS HEALTH PRESERVATIVE-FREEE VIALS OF LUBRICANT EYE DROPS [Concomitant]

REACTIONS (12)
  - Wheezing [None]
  - Eye swelling [None]
  - Ocular hyperaemia [None]
  - Eye pruritus [None]
  - Eye pain [None]
  - Crying [None]
  - Swelling face [None]
  - Swelling of eyelid [None]
  - Eye irritation [None]
  - Ocular discomfort [None]
  - Eye discharge [None]
  - Skin exfoliation [None]

NARRATIVE: CASE EVENT DATE: 20240218
